FAERS Safety Report 22110708 (Version 1)
Quarter: 2023Q1

REPORT INFORMATION
  Report Type: Spontaneous
  Country: US (occurrence: US)
  Receive Date: 20230317
  Receipt Date: 20230317
  Transmission Date: 20230418
  Serious: Yes (Hospitalization)
  Sender: FDA-Public Use
  Company Number: US-BIOVITRUM-2023-US-006883

PATIENT
  Age: 0 Year
  Sex: Male

DRUGS (3)
  1. SYNAGIS [Suspect]
     Active Substance: PALIVIZUMAB
     Indication: Premature baby
     Dosage: 50MG/0.5ML?100MG/ML
     Route: 030
     Dates: start: 20221025
  2. SYNAGIS [Suspect]
     Active Substance: PALIVIZUMAB
     Dosage: 100MG/ML
     Route: 030
     Dates: start: 202301
  3. SYNAGIS [Suspect]
     Active Substance: PALIVIZUMAB
     Dosage: 50MG/ML
     Route: 030
     Dates: start: 202302

REACTIONS (4)
  - Respiratory syncytial virus infection [Unknown]
  - Influenza [Unknown]
  - Dyspnoea [Unknown]
  - Wheezing [Unknown]

NARRATIVE: CASE EVENT DATE: 20230301
